FAERS Safety Report 7586151-1 (Version None)
Quarter: 2011Q2

REPORT INFORMATION
  Report Type: 
  Country: None (occurrence: None)
  Receive Date: 20110629
  Receipt Date: 20110629
  Transmission Date: 20111010
  Serious: Yes (Hospitalization)
  Sender: FDA-Public Use
  Company Number: None

PATIENT
  Age: 65 Year
  Sex: Female

DRUGS (2)
  1. PREDNISONE [Concomitant]
  2. SYMLIN [Suspect]
     Indication: DIABETES MELLITUS

REACTIONS (2)
  - BACK PAIN [None]
  - ACUTE CORONARY SYNDROME [None]
